FAERS Safety Report 8509661-9 (Version None)
Quarter: 2012Q3

REPORT INFORMATION
  Report Type: 
  Country: None (occurrence: None)
  Receive Date: 20120713
  Receipt Date: 20120710
  Transmission Date: 20120928
  Serious: No
  Sender: FDA-Public Use
  Company Number: US-TEVA-348023USA

PATIENT
  Sex: Male
  Weight: 74.91 kg

DRUGS (8)
  1. LISINOPRIL [Concomitant]
  2. ALDACTONE [Concomitant]
  3. CALCIUM CARBONATE [Concomitant]
  4. NUVIGIL [Suspect]
     Dosage: 150 MILLIGRAM;
     Route: 048
     Dates: start: 20120601
  5. TORSEMIDE [Concomitant]
  6. VITAMIN D [Concomitant]
  7. MIRAPEX [Interacting]
  8. ASPIRIN [Concomitant]

REACTIONS (2)
  - DRUG DOSE OMISSION [None]
  - DRUG INEFFECTIVE [None]
